FAERS Safety Report 4311399-9 (Version None)
Quarter: 2004Q1

REPORT INFORMATION
  Report Type: 
  Country: None (occurrence: None)
  Receive Date: 20040302
  Receipt Date: 20040213
  Transmission Date: 20041129
  Serious: Yes (Hospitalization, Other)
  Sender: FDA-Public Use
  Company Number: 04-053-0161

PATIENT
  Age: 10 Year
  Sex: Female
  Weight: 54 kg

DRUGS (5)
  1. CYTARABINE [Suspect]
     Indication: ACUTE LYMPHOCYTIC LEUKAEMIA
     Dosage: 115MG IVX4DAY/WKX4WK
     Route: 042
     Dates: start: 20031101, end: 20031231
  2. PREDNISONE [Concomitant]
  3. CYCLOPHOSPHAMIDE [Concomitant]
  4. MERCAPTOPURINE [Concomitant]
  5. ZOFRAN [Concomitant]

REACTIONS (4)
  - BLOOD BILIRUBIN INCREASED [None]
  - BONE MARROW DEPRESSION [None]
  - LIVER FUNCTION TEST ABNORMAL [None]
  - SEPSIS [None]
